FAERS Safety Report 6913078-8 (Version None)
Quarter: 2010Q3

REPORT INFORMATION
  Report Type: 
  Country: None (occurrence: None)
  Receive Date: 20100806
  Receipt Date: 20090708
  Transmission Date: 20110219
  Serious: No
  Sender: FDA-Public Use
  Company Number: US-PFIZER INC-2005140146

PATIENT
  Sex: Female
  Weight: 72.6 kg

DRUGS (8)
  1. DETROL LA [Suspect]
     Indication: INCONTINENCE
     Dosage: 4 MG, 1X/DAY
     Route: 065
  2. TOVIAZ [Suspect]
     Dosage: UNK
     Dates: start: 20090101
  3. CADUET [Concomitant]
     Dosage: UNK
     Route: 065
     Dates: start: 20050101
  4. LEVOTHYROXINE [Concomitant]
     Dosage: UNK
     Route: 065
     Dates: start: 19710101
  5. VALSARTAN [Concomitant]
     Dosage: UNK
     Route: 065
  6. ATENOLOL [Concomitant]
     Dosage: UNK
     Route: 065
  7. SALSALATE [Concomitant]
     Dosage: UNK
     Route: 065
  8. METFORMIN [Suspect]
     Dosage: UNK

REACTIONS (4)
  - BLOOD CHOLESTEROL ABNORMAL [None]
  - BLOOD TRIGLYCERIDES ABNORMAL [None]
  - SOMNOLENCE [None]
  - URINARY INCONTINENCE [None]
